FAERS Safety Report 10832818 (Version 1)
Quarter: 2015Q1

REPORT INFORMATION
  Report Type: Report from Study
  Country: US (occurrence: US)
  Receive Date: 20150219
  Receipt Date: 20150219
  Transmission Date: 20150721
  Serious: No
  Sender: FDA-Public Use
  Company Number: US-ABBVIE-14P-163-1200730-00

PATIENT
  Age: 58 Year
  Sex: Female

DRUGS (1)
  1. HUMIRA [Suspect]
     Active Substance: ADALIMUMAB
     Indication: RHEUMATOID ARTHRITIS
     Route: 058
     Dates: start: 20131125

REACTIONS (7)
  - Oral herpes [Not Recovered/Not Resolved]
  - Weight decreased [Not Recovered/Not Resolved]
  - Paraesthesia [Not Recovered/Not Resolved]
  - Sinus congestion [Not Recovered/Not Resolved]
  - Injection site pruritus [Recovered/Resolved]
  - Injection site rash [Recovered/Resolved]
  - Headache [Not Recovered/Not Resolved]

NARRATIVE: CASE EVENT DATE: 201311
